FAERS Safety Report 10233950 (Version 2)
Quarter: 2014Q2

REPORT INFORMATION
  Report Type: Spontaneous
  Country: IT (occurrence: IT)
  Receive Date: 20140612
  Receipt Date: 20140619
  Transmission Date: 20141212
  Serious: Yes (Other)
  Sender: FDA-Public Use
  Company Number: IT-TEVA-488109USA

PATIENT
  Age: 41 Year
  Sex: Female

DRUGS (2)
  1. ETHINYLESTRADIOL W/GESTODENE [Suspect]
     Indication: ORAL CONTRACEPTION
     Dosage: 1 DOSAGE FORMS DAILY;
     Route: 048
     Dates: start: 20090101, end: 20140406
  2. WARFARIN SODIUM [Concomitant]
     Indication: DEEP VEIN THROMBOSIS
     Route: 065
     Dates: start: 20110101

REACTIONS (2)
  - Deep vein thrombosis [Recovering/Resolving]
  - Labelled drug-disease interaction medication error [Unknown]
